FAERS Safety Report 24291372 (Version 1)
Quarter: 2024Q3

REPORT INFORMATION
  Report Type: Spontaneous
  Country: US (occurrence: None)
  Receive Date: 20240906
  Receipt Date: 20240906
  Transmission Date: 20241017
  Serious: No
  Sender: DOMPE FARMACEUTICI
  Company Number: US-FARMAPROD-202308-2465

PATIENT
  Age: 66 Year
  Sex: Female

DRUGS (6)
  1. OXERVATE [Suspect]
     Active Substance: CENEGERMIN-BKBJ
     Indication: Neurotrophic keratopathy
     Route: 047
     Dates: start: 20230710, end: 20230913
  2. OXERVATE [Suspect]
     Active Substance: CENEGERMIN-BKBJ
     Route: 047
     Dates: start: 20230914
  3. VITAMINS [Concomitant]
     Active Substance: VITAMINS
     Dosage: GUMMIES.
  4. CALCIUM [Concomitant]
     Active Substance: CALCIUM
     Dosage: 500(1250)
  5. AMLODIPINE BESYLATE [Concomitant]
     Active Substance: AMLODIPINE BESYLATE
  6. LETROZOLE [Concomitant]
     Active Substance: LETROZOLE

REACTIONS (5)
  - Eye swelling [Recovering/Resolving]
  - Eyelid pain [Recovered/Resolved]
  - Eye pain [Not Recovered/Not Resolved]
  - Injury [Unknown]
  - Product dose omission issue [Unknown]

NARRATIVE: CASE EVENT DATE: 20230701
